FAERS Safety Report 4726079-5 (Version None)
Quarter: 2005Q3

REPORT INFORMATION
  Report Type: 
  Country: None (occurrence: None)
  Receive Date: 20050726
  Receipt Date: 20050726
  Transmission Date: 20060218
  Serious: No
  Sender: FDA-Public Use
  Company Number: None

PATIENT
  Age: 48 Year
  Sex: Male

DRUGS (5)
  1. METHOTREXATE [Suspect]
     Indication: PSORIASIS
     Dosage: 2.5MG DAILY ORAL
     Route: 048
     Dates: start: 20050625, end: 20050628
  2. NAFCILLIN SODIUM [Concomitant]
  3. SILVADINE [Concomitant]
  4. LIDEX [Concomitant]
  5. ZANTAC [Concomitant]

REACTIONS (1)
  - ERYTHRODERMIC PSORIASIS [None]
